FAERS Safety Report 23418020 (Version 1)
Quarter: 2024Q1

REPORT INFORMATION
  Report Type: Spontaneous
  Country: GB (occurrence: GB)
  Receive Date: 20240118
  Receipt Date: 20240118
  Transmission Date: 20240410
  Serious: Yes (Hospitalization, Other)
  Sender: FDA-Public Use
  Company Number: GB-002147023-NVSC2020GB136309

PATIENT
  Age: 48 Year
  Weight: 75.4 kg

DRUGS (7)
  1. VINCRISTINE [Suspect]
     Active Substance: VINCRISTINE
     Indication: Chemotherapy
     Dosage: UNK
     Route: 065
     Dates: start: 20200107, end: 20200107
  2. PREDNISOLONE [Suspect]
     Active Substance: PREDNISOLONE
     Indication: Chemotherapy
     Dosage: UNK
     Route: 065
     Dates: start: 20200107, end: 20200110
  3. HYDROCORTISONE SODIUM SUCCINATE [Concomitant]
     Active Substance: HYDROCORTISONE SODIUM SUCCINATE
     Indication: Adjuvant therapy
     Dosage: UNK
     Route: 065
     Dates: start: 20200107, end: 20200107
  4. ACETAMINOPHEN [Concomitant]
     Active Substance: ACETAMINOPHEN
     Indication: Adjuvant therapy
     Dosage: UNK
     Route: 065
     Dates: start: 20200107, end: 20200107
  5. CHLORPHENIRAMINE MALEATE [Concomitant]
     Active Substance: CHLORPHENIRAMINE MALEATE
     Indication: Adjuvant therapy
     Dosage: UNK
     Route: 065
     Dates: start: 20200107, end: 20200107
  6. CYCLOPHOSPHAMIDE [Suspect]
     Active Substance: CYCLOPHOSPHAMIDE
     Indication: Chemotherapy
     Dosage: UNK
     Route: 065
     Dates: start: 20200107, end: 20200107
  7. RITUXIMAB [Suspect]
     Active Substance: RITUXIMAB
     Indication: Chemotherapy
     Dosage: UNK
     Route: 065
     Dates: start: 20200107, end: 20200107

REACTIONS (2)
  - Febrile neutropenia [Recovered/Resolved]
  - Influenza [Recovered/Resolved]

NARRATIVE: CASE EVENT DATE: 20200119
